FAERS Safety Report 17174546 (Version 1)
Quarter: 2019Q4

REPORT INFORMATION
  Report Type: Spontaneous
  Country: US (occurrence: US)
  Receive Date: 20191219
  Receipt Date: 20191219
  Transmission Date: 20200122
  Serious: No
  Sender: FDA-Public Use
  Company Number: US-UCBSA-2014002617

PATIENT
  Age: 17 Year
  Sex: Male
  Weight: 110 kg

DRUGS (1)
  1. CIMZIA [Suspect]
     Active Substance: CERTOLIZUMAB PEGOL
     Indication: CROHN^S DISEASE
     Dosage: 400 MG, EV 2 WEEKS(QOW)
     Dates: start: 20140528, end: 2014

REACTIONS (3)
  - Injection site swelling [Recovered/Resolved]
  - Injection site rash [Not Recovered/Not Resolved]
  - Off label use [Unknown]

NARRATIVE: CASE EVENT DATE: 20140612
